FAERS Safety Report 17076591 (Version 2)
Quarter: 2020Q1

REPORT INFORMATION
  Report Type: Spontaneous
  Country: US (occurrence: US)
  Receive Date: 20191126
  Receipt Date: 20200319
  Transmission Date: 20200409
  Serious: Yes (Other)
  Sender: FDA-Public Use
  Company Number: US-SA-2019SA323202

PATIENT
  Age: 68 Year
  Sex: Female
  Weight: 61.23 kg

DRUGS (7)
  1. ATORVASTATIN [Concomitant]
     Active Substance: ATORVASTATIN
     Dosage: UNK
     Dates: start: 2010
  2. OLMESARTAN [Concomitant]
     Active Substance: OLMESARTAN
     Dosage: UNK
     Dates: start: 2010
  3. TAXOTERE [Suspect]
     Active Substance: DOCETAXEL
     Dosage: 1 MG, Q3W
     Route: 042
     Dates: start: 20140213, end: 20140213
  4. HYDROCODONE [Concomitant]
     Active Substance: HYDROCODONE
     Dosage: UNK
     Dates: start: 2010
  5. LEVOTHYROXINE. [Suspect]
     Active Substance: LEVOTHYROXINE
  6. TAXOTERE [Suspect]
     Active Substance: DOCETAXEL
     Indication: BREAST CANCER FEMALE
     Dosage: 1 MG, Q3W
     Route: 042
     Dates: start: 20131029, end: 20131029
  7. PARAPLATIN [Concomitant]
     Active Substance: CARBOPLATIN
     Indication: BREAST CANCER FEMALE
     Dosage: UNK
     Route: 065

REACTIONS (6)
  - Alopecia [Not Recovered/Not Resolved]
  - Psychological trauma [Unknown]
  - Anxiety [Unknown]
  - Pain [Unknown]
  - Emotional distress [Unknown]
  - Impaired quality of life [Unknown]

NARRATIVE: CASE EVENT DATE: 201402
